FAERS Safety Report 8888416 (Version 1)
Quarter: 2012Q4

REPORT INFORMATION
  Report Type: 
  Country: US (occurrence: US)
  Receive Date: 20121106
  Receipt Date: 20121106
  Transmission Date: 20130627
  Serious: Yes (Death)
  Sender: FDA-Public Use
  Company Number: PHEH2012US021691

PATIENT
  Age: 81 Year
  Sex: Male

DRUGS (11)
  1. EXELON PATCH [Suspect]
     Dosage: UNK UKN, UNK
     Route: 062
     Dates: start: 2007
  2. ASMANEX [Concomitant]
  3. SPIRIVA [Concomitant]
  4. FISH OIL OMEGA 3 [Concomitant]
  5. COQ 10 [Concomitant]
  6. BAYER ASPIRIN [Concomitant]
     Dosage: 81 mg, UNK
  7. LUTEIN ZEAXANTHIN [Concomitant]
  8. GLUCOSAMINE HYDROCHLORIDE [Concomitant]
  9. CALCIUM CITRATE [Concomitant]
  10. VITAMIN D3 [Concomitant]
  11. PRESERVISION [Concomitant]

REACTIONS (1)
  - Death [Fatal]
